FAERS Safety Report 26144435 (Version 1)
Quarter: 2025Q4

REPORT INFORMATION
  Report Type: Spontaneous
  Country: GB (occurrence: GB)
  Receive Date: 20251211
  Receipt Date: 20251211
  Transmission Date: 20260117
  Serious: Yes (Hospitalization, Other)
  Sender: IPSEN BIOPHARMACEUTICALS, INC.
  Company Number: GB-ADVANZ PHARMA-202401000545

PATIENT
  Sex: Male

DRUGS (7)
  1. LANREOTIDE ACETATE [Suspect]
     Active Substance: LANREOTIDE ACETATE
     Indication: Product used for unknown indication
     Dosage: 120 MG (DEEP SUBCUTANEOUS INTO LEFT BUTTOCK)
     Route: 058
  2. LANREOTIDE [Suspect]
     Active Substance: LANREOTIDE
     Indication: Neuroendocrine tumour
     Dosage: 120 MG, E28D
     Route: 058
     Dates: start: 20231025
  3. LANREOTIDE [Suspect]
     Active Substance: LANREOTIDE
     Dosage: 120 MG, E28D
     Route: 058
  4. LANREOTIDE [Suspect]
     Active Substance: LANREOTIDE
     Dosage: 120 MG, E28D
     Route: 058
  5. LANREOTIDE [Suspect]
     Active Substance: LANREOTIDE
     Dosage: 120 MG, E28D (LANREOTIDE ADMINISTERED TO L UOQ BUTTOCK)
     Route: 058
  6. LANREOTIDE [Suspect]
     Active Substance: LANREOTIDE
     Dosage: 120 MG, E28D (DEEP SUBCUTANEOUS)
     Route: 058
     Dates: start: 20251028
  7. LANREOTIDE [Suspect]
     Active Substance: LANREOTIDE
     Dosage: 120 MG, E28D (DEEP SUBCUTANEOUS)
     Route: 058

REACTIONS (30)
  - Fall [Unknown]
  - Hypokalaemia [Unknown]
  - Jaundice [Recovered/Resolved]
  - Urinary tract infection [Recovered/Resolved]
  - Intestinal obstruction [Unknown]
  - Neuropathy peripheral [Unknown]
  - Cholelithiasis obstructive [Unknown]
  - Abdominal discomfort [Unknown]
  - Hypotension [Unknown]
  - Hyperhidrosis [Not Recovered/Not Resolved]
  - Cold sweat [Unknown]
  - Blood pressure fluctuation [Recovering/Resolving]
  - Dizziness [Unknown]
  - Neuroendocrine tumour [Unknown]
  - Disease progression [Unknown]
  - Haematological infection [Unknown]
  - Pollakiuria [Unknown]
  - Decubitus ulcer [Recovered/Resolved]
  - Scab [Not Recovered/Not Resolved]
  - Balance disorder [Not Recovered/Not Resolved]
  - Pain [Unknown]
  - Hypertension [Not Recovered/Not Resolved]
  - Urinary incontinence [Unknown]
  - Mobility decreased [Unknown]
  - Discomfort [Not Recovered/Not Resolved]
  - Headache [Unknown]
  - Abdominal pain [Not Recovered/Not Resolved]
  - Nausea [Unknown]
  - Vomiting [Unknown]
  - Incorrect product administration duration [Unknown]

NARRATIVE: CASE EVENT DATE: 20240117
